FAERS Safety Report 6880392-4 (Version None)
Quarter: 2010Q3

REPORT INFORMATION
  Report Type: 
  Country: None (occurrence: None)
  Receive Date: 20100727
  Receipt Date: 20100716
  Transmission Date: 20110219
  Serious: Yes (Other)
  Sender: FDA-Public Use
  Company Number: A0776269A

PATIENT
  Age: 48 Year
  Sex: Female

DRUGS (3)
  1. AVANDIA [Suspect]
     Dosage: 4MG TWICE PER DAY
     Route: 048
     Dates: start: 20020418, end: 20040401
  2. AVANDARYL [Suspect]
     Route: 048
     Dates: start: 20040401, end: 20050501
  3. AVANDAMET [Suspect]
     Route: 048
     Dates: start: 20040601, end: 20050501

REACTIONS (1)
  - RETINAL VEIN OCCLUSION [None]
